FAERS Safety Report 5635820-9 (Version None)
Quarter: 2008Q1

REPORT INFORMATION
  Report Type: 
  Country: None (occurrence: None)
  Receive Date: 20080221
  Receipt Date: 20070529
  Transmission Date: 20080703
  Serious: Yes (Hospitalization)
  Sender: FDA-Public Use
  Company Number: 2007VX001533

PATIENT
  Age: 24 Day
  Sex: Female

DRUGS (3)
  1. FLUCYTOSINE (FLUCYTOSINE) [Suspect]
     Indication: CANDIDIASIS
     Dosage: ; IV
     Route: 042
     Dates: start: 20070401, end: 20070411
  2. FUNGIZONE [Suspect]
     Indication: CANDIDIASIS
     Dosage: ; IV
     Route: 042
     Dates: start: 20070401, end: 20070411
  3. TAZOCILLINE (PIP/TAZO) [Suspect]
     Dates: start: 20070406, end: 20070411

REACTIONS (2)
  - CONVULSION NEONATAL [None]
  - ELECTROENCEPHALOGRAM ABNORMAL [None]
